FAERS Safety Report 5150301-7 (Version None)
Quarter: 2006Q4

REPORT INFORMATION
  Report Type: 
  Country: None (occurrence: None)
  Receive Date: 20061114
  Receipt Date: 20061106
  Transmission Date: 20070319
  Serious: Yes (Other)
  Sender: FDA-Public Use
  Company Number: CA-BAYER-200615641GDS

PATIENT
  Sex: Female

DRUGS (4)
  1. AVELOX [Suspect]
     Indication: DRUG USE FOR UNKNOWN INDICATION
     Dosage: TOTAL DAILY DOSE: 400 MG  UNIT DOSE: 400 MG
     Route: 048
     Dates: start: 20061101, end: 20061101
  2. LIPITOR [Concomitant]
     Indication: DRUG USE FOR UNKNOWN INDICATION
     Route: 048
  3. ASPIRIN [Concomitant]
     Indication: DRUG USE FOR UNKNOWN INDICATION
     Route: 048
  4. ARTHROTEC [Concomitant]
     Indication: BACK PAIN
     Route: 048

REACTIONS (4)
  - ANGINA PECTORIS [None]
  - DIZZINESS [None]
  - MUSCULAR WEAKNESS [None]
  - PALPITATIONS [None]
